FAERS Safety Report 5429632-9 (Version None)
Quarter: 2007Q3

REPORT INFORMATION
  Report Type: 
  Country: None (occurrence: None)
  Receive Date: 20070829
  Receipt Date: 20070827
  Transmission Date: 20080115
  Serious: Yes (Hospitalization)
  Sender: FDA-Public Use
  Company Number: HQWYE834427AUG07

PATIENT
  Sex: Female
  Weight: 58.4 kg

DRUGS (1)
  1. TEMSIROLIMUS [Suspect]
     Indication: RENAL CELL CARCINOMA STAGE UNSPECIFIED
     Dosage: 25 MG/BODY
     Route: 042
     Dates: start: 20070806

REACTIONS (2)
  - ATELECTASIS [None]
  - PLEURAL EFFUSION [None]
